FAERS Safety Report 10056713 (Version 2)
Quarter: 2014Q2

REPORT INFORMATION
  Report Type: Spontaneous
  Country: FR (occurrence: FR)
  Receive Date: 20140403
  Receipt Date: 20140403
  Transmission Date: 20141212
  Serious: Yes (Hospitalization)
  Sender: FDA-Public Use
  Company Number: FR-PFIZER INC-HQ8040506MAR2001

PATIENT
  Age: 1 Month
  Sex: 0
  Weight: 1.2 kg

DRUGS (7)
  1. DOPRAM [Suspect]
     Dosage: 0.3 MG/KG/HR
     Route: 042
  2. DOPRAM [Suspect]
     Dosage: 0.5 MG/KG/HR
     Route: 042
  3. DOPRAM [Suspect]
     Dosage: 4MG/KG EVERY 6 HR
     Route: 048
     Dates: end: 20010206
  4. RANIPLEX [Suspect]
     Dosage: 5 MG/KG, 1X/DAY
     Dates: end: 20010206
  5. ALDACTONE [Suspect]
     Dosage: UNK
     Dates: end: 20010206
  6. LASILIX [Suspect]
     Dosage: UNK
  7. CAFFEINE [Concomitant]
     Dosage: UNK

REACTIONS (1)
  - Electrocardiogram QT prolonged [Unknown]
